FAERS Safety Report 5643807-5 (Version None)
Quarter: 2008Q1

REPORT INFORMATION
  Report Type: 
  Country: None (occurrence: None)
  Receive Date: 20080228
  Receipt Date: 20080215
  Transmission Date: 20080703
  Serious: Yes (Hospitalization)
  Sender: FDA-Public Use
  Company Number: PT-MERCK-0801PRT00005

PATIENT
  Sex: Female

DRUGS (4)
  1. JANUVIA [Suspect]
     Route: 048
     Dates: end: 20080101
  2. JANUVIA [Suspect]
     Route: 048
     Dates: start: 20080101, end: 20080101
  3. METFORMIN HYDROCHLORIDE [Suspect]
     Indication: DIABETES MELLITUS
     Route: 048
     Dates: end: 20080101
  4. METFORMIN HYDROCHLORIDE [Suspect]
     Route: 048
     Dates: start: 20080101

REACTIONS (1)
  - HYPOGLYCAEMIA [None]
